FAERS Safety Report 9758444 (Version 1)
Quarter: 2013Q4

REPORT INFORMATION
  Report Type: Spontaneous
  Country: US (occurrence: None)
  Receive Date: 20131213
  Receipt Date: 20131213
  Transmission Date: 20140711
  Serious: Yes (Life-Threatening, Hospitalization)
  Sender: FDA-Public Use
  Company Number: None

PATIENT
  Age: 60 Year
  Sex: Male
  Weight: 74.9 kg

DRUGS (1)
  1. ASPIRIN 81 MG [Suspect]
     Indication: CARDIOVASCULAR DISORDER
     Dosage: 1 PILL
     Route: 048

REACTIONS (1)
  - Cerebral haemorrhage [None]
